FAERS Safety Report 6569461-6 (Version None)
Quarter: 2010Q1

REPORT INFORMATION
  Report Type: 
  Country: None (occurrence: None)
  Receive Date: 20100204
  Receipt Date: 20100104
  Transmission Date: 20100710
  Serious: No
  Sender: FDA-Public Use
  Company Number: US-BAYER-200931826NA

PATIENT
  Age: 53 Year
  Sex: Female
  Weight: 73 kg

DRUGS (3)
  1. ANGELIQ [Suspect]
     Indication: HOT FLUSH
     Route: 048
     Dates: start: 20090826, end: 20090902
  2. LIPITOR [Concomitant]
  3. SYNTHROID [Concomitant]

REACTIONS (5)
  - NAUSEA [None]
  - PAIN [None]
  - PAIN IN EXTREMITY [None]
  - PYREXIA [None]
  - VOMITING [None]
